FAERS Safety Report 6972949-7 (Version None)
Quarter: 2010Q3

REPORT INFORMATION
  Report Type: 
  Country: None (occurrence: None)
  Receive Date: 20100909
  Receipt Date: 20100602
  Transmission Date: 20110219
  Serious: No
  Sender: FDA-Public Use
  Company Number: US-KINGPHARMUSA00001-K201000689

PATIENT
  Sex: Male
  Weight: 62.132 kg

DRUGS (15)
  1. EMBEDA [Suspect]
     Indication: NEUROPATHY PERIPHERAL
     Dosage: 20 MG, QD
     Route: 048
  2. NORVIR [Concomitant]
     Indication: HIV INFECTION
     Dosage: UNK
  3. REYATAZ [Concomitant]
     Indication: HIV INFECTION
     Dosage: UNK
  4. TRUVADA [Concomitant]
     Indication: HIV INFECTION
     Dosage: UNK
  5. ANTIOXIDANT [Concomitant]
     Indication: SUPPLEMENTATION THERAPY
     Dosage: UNK
  6. CYMBALTA [Concomitant]
     Indication: FIBROMYALGIA
     Dosage: UNK
  7. PRENATAL VITAMINS [Concomitant]
     Indication: SUPPLEMENTATION THERAPY
     Dosage: UNK
  8. COLACE [Concomitant]
  9. MECLIZINE HYDROCHLORIDE [Concomitant]
     Indication: NAUSEA
  10. FISH OIL [Concomitant]
     Indication: PRODUCT USED FOR UNKNOWN INDICATION
  11. OSTEO BI-FLEX [Concomitant]
  12. DIAZEPAM [Concomitant]
  13. LORAZEPAM [Concomitant]
  14. MARINOL [Concomitant]
  15. RITALIN [Concomitant]

REACTIONS (4)
  - ACTIVITIES OF DAILY LIVING IMPAIRED [None]
  - DECREASED APPETITE [None]
  - FATIGUE [None]
  - HYPERSOMNIA [None]
